FAERS Safety Report 8109886-0 (Version None)
Quarter: 2012Q1

REPORT INFORMATION
  Report Type: 
  Country: None (occurrence: None)
  Receive Date: 20120202
  Receipt Date: 20120120
  Transmission Date: 20120608
  Serious: No
  Sender: FDA-Public Use
  Company Number: US-AMGEN-USASP2011069227

PATIENT
  Age: 67 Year
  Sex: Female
  Weight: 58.05 kg

DRUGS (6)
  1. LISINOPRIL [Concomitant]
  2. ENBREL [Suspect]
     Indication: RHEUMATOID ARTHRITIS
     Dosage: 50 MG, QWK
     Route: 058
     Dates: start: 20111019
  3. ASPIRIN [Concomitant]
  4. DETROL [Concomitant]
     Dosage: UNK
  5. RECLAST [Concomitant]
  6. PREDNISOLONE [Concomitant]
     Dosage: 5 MG, QD

REACTIONS (6)
  - HYPERKERATOSIS [None]
  - ERYTHEMA [None]
  - OEDEMA PERIPHERAL [None]
  - SKIN EXFOLIATION [None]
  - PRURITUS GENERALISED [None]
  - SECRETION DISCHARGE [None]
